FAERS Safety Report 24939885 (Version 1)
Quarter: 2025Q1

REPORT INFORMATION
  Report Type: Report from Study
  Country: CA (occurrence: CA)
  Receive Date: 20250207
  Receipt Date: 20250207
  Transmission Date: 20250409
  Serious: Yes (Death)
  Sender: CSL BEHRING
  Company Number: CA-BEH-2024173624

PATIENT
  Age: 75 Year
  Sex: Male
  Weight: 78 kg

DRUGS (3)
  1. HIZENTRA [Suspect]
     Active Substance: HUMAN IMMUNOGLOBULIN G
     Indication: Secondary immunodeficiency
     Dosage: 8 G, QW
     Route: 065
     Dates: start: 20240201
  2. VENTOLIN [Concomitant]
     Active Substance: ALBUTEROL SULFATE
     Route: 055
  3. HIPREX [Concomitant]
     Active Substance: METHENAMINE HIPPURATE

REACTIONS (6)
  - Death [Fatal]
  - Skin ulcer haemorrhage [Unknown]
  - Platelet count decreased [Unknown]
  - Contusion [Unknown]
  - Haematoma [Unknown]
  - Injection site mass [Unknown]

NARRATIVE: CASE EVENT DATE: 20240719
